FAERS Safety Report 5103244-9 (Version None)
Quarter: 2006Q3

REPORT INFORMATION
  Report Type: 
  Country: None (occurrence: None)
  Receive Date: 20060908
  Receipt Date: 20050919
  Transmission Date: 20061208
  Serious: Yes (Other)
  Sender: FDA-Public Use
  Company Number: 2006S1000181

PATIENT
  Age: 3 Day
  Sex: Female

DRUGS (18)
  1. INOMAX [Suspect]
     Indication: LUNG DISORDER
     Dosage: 5 PPM; INH_GAS; INH; CONT; INH
     Route: 055
     Dates: start: 20050607
  2. INOMAX [Suspect]
     Indication: PROPHYLAXIS
     Dosage: 5 PPM; INH_GAS; INH; CONT; INH
     Route: 055
     Dates: start: 20050607
  3. AMPICILLIN [Concomitant]
  4. CEFOTAXIME SODIUM [Concomitant]
  5. TOBRAMYCIN [Concomitant]
  6. NYSTATIN [Concomitant]
  7. HYDROCORTISONE [Concomitant]
  8. VALIUM [Concomitant]
  9. SALBUTAMOL (SALBUTAMOL) [Concomitant]
  10. ALVEOFACT (PHOSPHOLIPIDFRACTION, BOVINE LUNG) [Concomitant]
  11. DIAZEPAM [Concomitant]
  12. PHENOBARBITAL TAB [Concomitant]
  13. DOBUTAMINE (DOBUTAMINE) [Concomitant]
  14. INDOMETHACIN [Concomitant]
  15. .............. [Concomitant]
  16. IBUPROFEN [Concomitant]
  17. CEFTAZIDIME (CEFTAZIDIME) [Concomitant]
  18. VANCOMYCIN [Concomitant]

REACTIONS (2)
  - NEONATAL DISORDER [None]
  - PATENT DUCTUS ARTERIOSUS [None]
